FAERS Safety Report 18255192 (Version 3)
Quarter: 2020Q4

REPORT INFORMATION
  Report Type: Report from Study
  Country: None (occurrence: US)
  Receive Date: 20200911
  Receipt Date: 20201202
  Transmission Date: 20210113
  Serious: Yes (Hospitalization, Other)
  Sender: FDA-Public Use
  Company Number: US-ABBVIE-20K-163-3554845-00

PATIENT
  Age: 81 Year
  Sex: Male
  Weight: 68.1 kg

DRUGS (5)
  1. HUMIRA [Suspect]
     Active Substance: ADALIMUMAB
     Indication: ARTHRITIS
  2. PREDNISONE. [Suspect]
     Active Substance: PREDNISONE
     Indication: UVEITIS
     Route: 048
  3. HUMIRA [Suspect]
     Active Substance: ADALIMUMAB
     Indication: UVEITIS
  4. HUMIRA [Suspect]
     Active Substance: ADALIMUMAB
     Indication: UVEITIS
     Route: 058
     Dates: start: 2017, end: 202006
  5. HUMIRA [Suspect]
     Active Substance: ADALIMUMAB
     Indication: RHEUMATOID ARTHRITIS
     Route: 058
     Dates: start: 202006

REACTIONS (11)
  - Gastric haemorrhage [Recovering/Resolving]
  - Sinusitis [Recovered/Resolved]
  - Bone marrow failure [Not Recovered/Not Resolved]
  - Road traffic accident [Unknown]
  - Surgical failure [Unknown]
  - Cyst [Unknown]
  - Haemoglobin decreased [Recovering/Resolving]
  - Blood loss anaemia [Recovering/Resolving]
  - Gastric antral vascular ectasia [Not Recovered/Not Resolved]
  - Faeces discoloured [Not Recovered/Not Resolved]
  - Urinary tract infection [Recovered/Resolved]

NARRATIVE: CASE EVENT DATE: 2019
